FAERS Safety Report 9319240 (Version 1)
Quarter: 2013Q2

REPORT INFORMATION
  Report Type: Spontaneous
  Country: GB (occurrence: GB)
  Receive Date: 20130530
  Receipt Date: 20130530
  Transmission Date: 20140414
  Serious: Yes (Hospitalization)
  Sender: FDA-Public Use
  Company Number: GB-MYLANLABS-2013S1010819

PATIENT
  Age: 15 Year
  Sex: Male

DRUGS (1)
  1. OLANZAPINE [Suspect]
     Indication: OVERDOSE
     Route: 065

REACTIONS (6)
  - Agitation [Recovered/Resolved]
  - Dystonia [Recovered/Resolved]
  - Miosis [Recovered/Resolved]
  - Consciousness fluctuating [Recovered/Resolved]
  - Electrocardiogram abnormal [Recovered/Resolved]
  - Overdose [Recovered/Resolved]
